FAERS Safety Report 5018453-7 (Version None)
Quarter: 2006Q2

REPORT INFORMATION
  Report Type: 
  Country: None (occurrence: None)
  Receive Date: 20060530
  Receipt Date: 20050406
  Transmission Date: 20061013
  Serious: Yes (Other)
  Sender: FDA-Public Use
  Company Number: 2005056268

PATIENT
  Age: 52 Year
  Sex: Female

DRUGS (7)
  1. LYRICA [Suspect]
     Indication: EPILEPSY
     Dosage: ORAL
     Route: 048
  2. ATENOLOL [Concomitant]
  3. VALPROATE SODIUM [Concomitant]
  4. PANTOPRAZOLE SODIUM [Concomitant]
  5. CARBAMAZEPINE [Concomitant]
  6. FUROSEMIDE [Concomitant]
  7. FELODIPINE [Concomitant]

REACTIONS (2)
  - BLOOD PRESSURE INCREASED [None]
  - CHEST PAIN [None]
